FAERS Safety Report 8889048 (Version 2)
Quarter: 2013Q1

REPORT INFORMATION
  Report Type: Spontaneous
  Country: US (occurrence: US)
  Receive Date: 20121106
  Receipt Date: 20130116
  Transmission Date: 20140127
  Serious: Yes (Other)
  Sender: FDA-Public Use
  Company Number: US-BAYER-2012-113202

PATIENT
  Age: 34 Year
  Sex: Female
  Weight: 123.63 kg

DRUGS (1)
  1. MIRENA [Suspect]
     Indication: CONTRACEPTION
     Dosage: 20 MCG/24HR, CONT
     Route: 015
     Dates: start: 200808, end: 20121026

REACTIONS (3)
  - Depression suicidal [Recovered/Resolved]
  - Adverse event [Recovered/Resolved]
  - Mood swings [Recovered/Resolved]
